FAERS Safety Report 7490730-X (Version None)
Quarter: 2011Q2

REPORT INFORMATION
  Report Type: 
  Country: None (occurrence: None)
  Receive Date: 20110519
  Receipt Date: 20110428
  Transmission Date: 20111010
  Serious: Yes (Other)
  Sender: FDA-Public Use
  Company Number: US-BAYER-200934374NA

PATIENT
  Sex: Male

DRUGS (24)
  1. TRASYLOL [Suspect]
     Indication: CORONARY ARTERY BYPASS
     Dosage: 1CC TEST DOSE, 200CC BLOUS, INFUSED AT 500 CC/HR, THEN DECREASED TO 25CC/HR
     Route: 042
     Dates: start: 20051122
  2. COREG [Concomitant]
     Dosage: 6.25 MG, BID
     Route: 048
  3. FENTANYL [Concomitant]
     Dosage: UNK
     Route: 042
     Dates: start: 20051122
  4. NITROGLYCERIN [Concomitant]
     Dosage: UNK
     Route: 042
     Dates: start: 20051122
  5. NEO-SYNEPHRINOL [Concomitant]
     Dosage: UNK
     Route: 042
     Dates: start: 20051122
  6. AMARYL [Concomitant]
     Dosage: 2 MG, QD
     Route: 048
  7. LANTUS [Concomitant]
     Dosage: 40 U, HS
     Route: 058
  8. VECURONIUM BROMIDE [Concomitant]
     Dosage: UNK
     Route: 042
     Dates: start: 20051122
  9. PROTAMINE SULFATE [Concomitant]
     Dosage: UNK
     Route: 042
     Dates: start: 20051122
  10. LIPITOR [Concomitant]
     Dosage: 80 MG, QD
     Route: 048
  11. VICODIN [Concomitant]
     Dosage: UNK UNK, PRN
  12. DOBUTAMINE HYDROCHLORIDE [Concomitant]
     Dosage: UNK
     Route: 042
     Dates: start: 20051122
  13. TRASYLOL [Suspect]
     Indication: ATRIAL SEPTAL DEFECT REPAIR
  14. CARDIZEM [Concomitant]
     Dosage: 240 MG, BID
     Route: 048
  15. ACETYLSALICYLIC ACID SRT [Concomitant]
     Dosage: 325 MG, QD
     Route: 048
  16. TENEX [Concomitant]
     Dosage: 1 MG, QD
     Route: 048
  17. DILACOR XR [Concomitant]
     Dosage: 240 MG, BID
     Route: 048
  18. EPINEPHRINE [Concomitant]
     Dosage: UNK
     Route: 042
     Dates: start: 20051122
  19. ACTOS [Concomitant]
     Dosage: 30 MG, QD
  20. HYDRALAZINE HCL [Concomitant]
     Dosage: 10 MG, QID
     Route: 048
  21. NOVOLIN [INSULIN] [Concomitant]
     Dosage: SLIDING SCALE
  22. PLAVIX [Concomitant]
     Dosage: 75 MG, QD
     Route: 048
  23. VERSED [Concomitant]
     Dosage: UNK
     Route: 042
     Dates: start: 20051122
  24. PROPOFOL [Concomitant]
     Dosage: UNK
     Route: 042
     Dates: start: 20051122

REACTIONS (12)
  - NERVOUSNESS [None]
  - PAIN [None]
  - RENAL INJURY [None]
  - EMOTIONAL DISTRESS [None]
  - MULTI-ORGAN FAILURE [None]
  - ANXIETY [None]
  - DEPRESSION [None]
  - ANHEDONIA [None]
  - UNEVALUABLE EVENT [None]
  - INJURY [None]
  - FEAR [None]
  - RENAL FAILURE [None]
